FAERS Safety Report 15964406 (Version 1)
Quarter: 2019Q1

REPORT INFORMATION
  Report Type: Spontaneous
  Country: US (occurrence: US)
  Receive Date: 20190215
  Receipt Date: 20190215
  Transmission Date: 20190417
  Serious: Yes (Other)
  Sender: FDA-Public Use
  Company Number: US-PRINSTON PHARMACEUTICAL INC.-2019PRN00180

PATIENT
  Age: 31 Year
  Sex: Female

DRUGS (13)
  1. DULOXETINE. [Suspect]
     Active Substance: DULOXETINE
     Dosage: 60 MG, 1X/DAY
     Route: 048
  2. DIAZEPAM. [Concomitant]
     Active Substance: DIAZEPAM
     Dosage: 5 MG, 3X/DAY
     Route: 048
  3. NYSTATIN. [Concomitant]
     Active Substance: NYSTATIN
     Indication: RASH
     Dosage: 100000 U/G, UP TO 3X/DAY AS NEEDED
     Route: 061
  4. ACETAMINOPHEN. [Concomitant]
     Active Substance: ACETAMINOPHEN
     Indication: PAIN
     Dosage: 1 G, 3X/DAY AS NEEDED
     Route: 048
  5. NITROGLYCERINE [Concomitant]
     Active Substance: NITROGLYCERIN
     Indication: BLOOD PRESSURE MEASUREMENT
     Dosage: 1 INCH WORTH TO CHEST FOR SYSTOLIC BLOOD PRESSURE GREATER THAN 160/90 AND TO BE WIPED OFF AT 120/80
     Route: 062
  6. DOCUSATE [Concomitant]
     Active Substance: DOCUSATE
     Dosage: ^MINI ENEMA^, 1X/DAY
     Route: 054
  7. DULOXETINE. [Suspect]
     Active Substance: DULOXETINE
     Indication: NEURALGIA
     Dosage: 20 MG, 1X/DAY
     Route: 048
  8. DULOXETINE. [Suspect]
     Active Substance: DULOXETINE
     Dosage: 40 MG, 1X/DAY
     Route: 048
  9. AMITRIPTYLINE [Suspect]
     Active Substance: AMITRIPTYLINE
     Indication: NEURALGIA
     Dosage: 10 MG, 1X/DAY
     Route: 065
  10. AMITRIPTYLINE [Suspect]
     Active Substance: AMITRIPTYLINE
     Dosage: 20 MG, 1X/DAY
     Route: 065
  11. TIZANIDINE. [Concomitant]
     Active Substance: TIZANIDINE
     Dosage: 8 MG, 3X/DAY
     Route: 048
  12. DULOXETINE. [Suspect]
     Active Substance: DULOXETINE
     Dosage: 30 MG, 1X/DAY
     Route: 048
  13. GLATIRAMER ACETATE. [Concomitant]
     Active Substance: GLATIRAMER ACETATE
     Dosage: 40 MG, 3X/WEEK
     Route: 058

REACTIONS (2)
  - Autonomic dysreflexia [Recovered/Resolved]
  - Drug interaction [Recovered/Resolved]
